FAERS Safety Report 10052706 (Version 3)
Quarter: 2014Q2

REPORT INFORMATION
  Report Type: Spontaneous
  Country: US (occurrence: None)
  Receive Date: 20140331
  Receipt Date: 20140425
  Transmission Date: 20141212
  Serious: Yes (Hospitalization)
  Sender: FDA-Public Use
  Company Number: UTC-045346

PATIENT
  Age: 72 Year
  Sex: Female
  Weight: 87.54 kg

DRUGS (3)
  1. TYVASO [Suspect]
     Indication: PULMONARY ARTERIAL HYPERTENSION
     Route: 055
     Dates: start: 20140211
  2. WARFARIN (WARFARIN)(UNKOWN) [Concomitant]
  3. ADCIRCA (TADALAFIL) [Concomitant]

REACTIONS (6)
  - Nephrolithiasis [None]
  - Dyspnoea [None]
  - Oropharyngeal pain [None]
  - Chronic obstructive pulmonary disease [None]
  - Hypertension [None]
  - Pulmonary arterial hypertension [None]
